FAERS Safety Report 6135014-7 (Version None)
Quarter: 2009Q1

REPORT INFORMATION
  Report Type: 
  Country: None (occurrence: None)
  Receive Date: 20090325
  Receipt Date: 20090308
  Transmission Date: 20090719
  Serious: Yes (Hospitalization, Disabling)
  Sender: FDA-Public Use
  Company Number: 2005S1005176

PATIENT
  Age: 63 Year
  Sex: Male
  Weight: 66.2252 kg

DRUGS (8)
  1. PHOSPHOSODA FLAVOR NOT SPECIFIED [Suspect]
     Indication: COLONOSCOPY
     Dosage: 90 ML; TOTAL; PO
     Route: 048
     Dates: start: 20050512, end: 20050512
  2. LISINOPRIL [Concomitant]
  3. TYLENOL (CAPLET) [Concomitant]
  4. HYDROCHLOROTHIAZIDE [Concomitant]
  5. METOPROLOL [Concomitant]
  6. IRON [Concomitant]
  7. LEVOTHYROXINE SODIUM [Concomitant]
  8. CELEXA [Concomitant]

REACTIONS (8)
  - DEHYDRATION [None]
  - HYPERPHOSPHATAEMIA [None]
  - HYPOTENSION [None]
  - NEPHROCALCINOSIS [None]
  - RENAL FAILURE ACUTE [None]
  - RENAL FAILURE CHRONIC [None]
  - RENAL TUBULAR NECROSIS [None]
  - TUBULOINTERSTITIAL NEPHRITIS [None]
